FAERS Safety Report 10830343 (Version 2)
Quarter: 2015Q2

REPORT INFORMATION
  Report Type: Spontaneous
  Country: US (occurrence: US)
  Receive Date: 20150219
  Receipt Date: 20150605
  Transmission Date: 20150821
  Serious: Yes (Other)
  Sender: FDA-Public Use
  Company Number: US-GLAXOSMITHKLINE-US2015GSK018419

PATIENT
  Age: 65 Year
  Sex: Male

DRUGS (1)
  1. JALYN [Suspect]
     Active Substance: DUTASTERIDE\TAMSULOSIN HYDROCHLORIDE
     Indication: BENIGN PROSTATIC HYPERPLASIA
     Dosage: 1 DF, QD

REACTIONS (7)
  - Hot flush [Recovering/Resolving]
  - Nocturia [Unknown]
  - Feeling abnormal [Unknown]
  - Prostate cancer [Unknown]
  - Metastases to bone [Unknown]
  - Urinary retention [Unknown]
  - Pollakiuria [Unknown]

NARRATIVE: CASE EVENT DATE: 20121024
